FAERS Safety Report 16498623 (Version 2)
Quarter: 2019Q3

REPORT INFORMATION
  Report Type: Spontaneous
  Country: US (occurrence: US)
  Receive Date: 20190629
  Receipt Date: 20190703
  Transmission Date: 20191004
  Serious: Yes (Hospitalization, Other)
  Sender: FDA-Public Use
  Company Number: US-AUROBINDO-AUR-APL-2019-037480

PATIENT

DRUGS (5)
  1. FLUDARABINE [Suspect]
     Active Substance: FLUDARABINE PHOSPHATE
     Indication: ACUTE MYELOID LEUKAEMIA
     Dosage: UNK
     Route: 065
  2. PANOBINOSTAT [Suspect]
     Active Substance: PANOBINOSTAT
     Indication: GRAFT VERSUS HOST DISEASE
     Dosage: UNK
     Route: 065
  3. SIROLIMUS. [Suspect]
     Active Substance: SIROLIMUS
     Indication: GRAFT VERSUS HOST DISEASE
     Dosage: UNK
     Route: 065
  4. MELPHALAN. [Suspect]
     Active Substance: MELPHALAN
     Indication: PRODUCT USED FOR UNKNOWN INDICATION
     Dosage: UNK
     Route: 065
  5. TACROLIMUS. [Suspect]
     Active Substance: TACROLIMUS
     Indication: GRAFT VERSUS HOST DISEASE
     Dosage: UNK
     Route: 065

REACTIONS (16)
  - Atrial fibrillation [Recovering/Resolving]
  - Diarrhoea [Not Recovered/Not Resolved]
  - Productive cough [Not Recovered/Not Resolved]
  - Dyspnoea [Recovering/Resolving]
  - Haemoglobin decreased [Recovering/Resolving]
  - Platelet count decreased [Recovering/Resolving]
  - Blood albumin decreased [Recovering/Resolving]
  - Hypotension [Recovering/Resolving]
  - Pneumomediastinum [Recovering/Resolving]
  - Pneumatosis intestinalis [Recovering/Resolving]
  - Dizziness [Recovering/Resolving]
  - Pneumoperitoneum [Recovering/Resolving]
  - White blood cell count decreased [Recovering/Resolving]
  - Tachycardia [Recovering/Resolving]
  - Abdominal pain [Not Recovered/Not Resolved]
  - Candida infection [Recovering/Resolving]
